FAERS Safety Report 7709894-5 (Version None)
Quarter: 2011Q3

REPORT INFORMATION
  Report Type: 
  Country: None (occurrence: None)
  Receive Date: 20110825
  Receipt Date: 20110816
  Transmission Date: 20111222
  Serious: Yes (Death, Hospitalization)
  Sender: FDA-Public Use
  Company Number: US-ACTELION-A-NJ2011-52847

PATIENT

DRUGS (2)
  1. TRACLEER [Suspect]
     Dosage: UNK
     Route: 048
     Dates: start: 20090313
  2. TRACLEER [Suspect]
     Indication: PULMONARY ARTERIAL HYPERTENSION
     Dosage: 125 MG, BID
     Route: 048
     Dates: start: 20091020, end: 20110801

REACTIONS (1)
  - MULTI-ORGAN FAILURE [None]
